FAERS Safety Report 8136436-5 (Version None)
Quarter: 2012Q1

REPORT INFORMATION
  Report Type: 
  Country: None (occurrence: None)
  Receive Date: 20120103
  Receipt Date: 20110823
  Transmission Date: 20120608
  Serious: No
  Sender: FDA-Public Use
  Company Number: AE-2011-001080

PATIENT
  Age: 45 Year
  Sex: Female
  Weight: 102.5129 kg

DRUGS (5)
  1. RIBAVIRIN [Concomitant]
  2. LISINOPRIL [Concomitant]
  3. INCIVEK [Suspect]
     Dosage: 2250 MG (750 MG,3 IN 1 D), ORAL
     Route: 048
  4. PEGASYS [Concomitant]
  5. PROCARDIA [Concomitant]

REACTIONS (2)
  - PAIN [None]
  - FATIGUE [None]
